FAERS Safety Report 6143870-1 (Version None)
Quarter: 2009Q2

REPORT INFORMATION
  Report Type: 
  Country: None (occurrence: None)
  Receive Date: 20090405
  Receipt Date: 20090323
  Transmission Date: 20091009
  Serious: Yes (Death, Other)
  Sender: FDA-Public Use
  Company Number: US-PFIZER INC-2009190662

PATIENT
  Sex: Male

DRUGS (3)
  1. SERTRALINE HCL [Suspect]
  2. DIPHENHYDRAMINE HCL [Suspect]
  3. CHLORPHENTERMINE 65MG TAB [Suspect]

REACTIONS (2)
  - ACCIDENT [None]
  - DRUG INTERACTION [None]
